FAERS Safety Report 23569488 (Version 1)
Quarter: 2024Q1

REPORT INFORMATION
  Report Type: Spontaneous
  Country: ES (occurrence: ES)
  Receive Date: 20240227
  Receipt Date: 20240227
  Transmission Date: 20240410
  Serious: Yes (Hospitalization)
  Sender: FDA-Public Use
  Company Number: None

PATIENT
  Age: 55 Year
  Sex: Female

DRUGS (20)
  1. CAPECITABINE [Suspect]
     Active Substance: CAPECITABINE
     Indication: Breast cancer stage IV
     Dosage: IN 3RD LINE WITH CAPECITABINE (CPC) + TRASTUZUMAB (TTZ) + TUCATINIB
     Dates: start: 20230828
  2. CAPECITABINE [Suspect]
     Active Substance: CAPECITABINE
     Indication: Breast cancer stage IV
     Dosage: CAPECITABINE (CPC) + TRASTUZUMAB (TTZ) + TUCATINIB (CYCLE 2: 18/09/23)
     Dates: start: 20230918
  3. CAPECITABINE [Suspect]
     Active Substance: CAPECITABINE
     Indication: Breast cancer stage IV
     Dosage: (1224A). CYCLE 3. 2000 MG MORNING/1500 MG AT NIGHT ?DAILY DOSE: 3500 MILLIGRAM
     Route: 048
     Dates: start: 20231103, end: 20231115
  4. TRASTUZUMAB [Suspect]
     Active Substance: TRASTUZUMAB
     Indication: Breast cancer stage IV
     Dosage: IN 3RD LINE WITH CAPECITABINE (CPC) + TRASTUZUMAB (TTZ) + TUCATINIB
     Dates: start: 20230828
  5. TRASTUZUMAB [Suspect]
     Active Substance: TRASTUZUMAB
     Indication: Breast cancer stage IV
     Dosage: CYCLE 2: 18/09/23.
     Dates: start: 20230918
  6. TRASTUZUMAB [Suspect]
     Active Substance: TRASTUZUMAB
     Indication: Breast cancer stage IV
     Dosage: (1168A). CYCLE 3
     Route: 048
     Dates: start: 20231103, end: 20231115
  7. TUKYSA [Suspect]
     Active Substance: TUCATINIB
     Indication: Breast cancer stage IV
     Dosage: IN 3RD LINE WITH CAPECITABINE (CPC) + TRASTUZUMAB (TTZ) + TUCATINIB
     Dates: start: 20230828
  8. TUKYSA [Suspect]
     Active Substance: TUCATINIB
     Indication: Breast cancer stage IV
     Dosage: CYCLE 2: 18/09/23.
     Dates: start: 20230918
  9. TUKYSA [Suspect]
     Active Substance: TUCATINIB
     Indication: Breast cancer stage IV
     Dosage: TABLETS FILM COATED, 84 TABLETS. CYCLE 3 WITH DOSE REDUCTION TO 50% OF TUCATINIB
     Route: 048
     Dates: start: 20231103, end: 20231115
  10. FENTANYL CITRATE [Concomitant]
     Active Substance: FENTANYL CITRATE
     Dosage: EFFENTORA 100 MCG + 200 MCG SP
  11. FENTANYL [Concomitant]
     Active Substance: FENTANYL\FENTANYL CITRATE
     Dosage: FENTANYL PATCH 100 MCG/H EVERY 72H,?DAILY DOSE: 2400 MICROGRAM
  12. LORMETAZEPAM [Concomitant]
     Active Substance: LORMETAZEPAM
     Dosage: 2 MG PER DAY?DAILY DOSE: 2 MILLIGRAM
  13. MIRTAZAPINE [Concomitant]
     Active Substance: MIRTAZAPINE
     Dosage: 30 MG PER DAY?DAILY DOSE: 30 MILLIGRAM
  14. Nolotil [Concomitant]
     Dosage: 575 MG C/8H SP?DAILY DOSE: 1725 MICROGRAM
  15. OLANZAPINE [Concomitant]
     Active Substance: OLANZAPINE
     Dosage: 5 MG SP
  16. PRIMPERAN [Concomitant]
     Active Substance: METOCLOPRAMIDE HYDROCHLORIDE
     Dosage: 10 MG SP
  17. ALPRAZOLAM [Concomitant]
     Active Substance: ALPRAZOLAM
     Dosage: 0.25 C/8H,
  18. MOVICOL [Concomitant]
     Active Substance: POLYETHYLENE GLYCOL 3350\POTASSIUM CHLORIDE\SODIUM BICARBONATE\SODIUM CHLORIDE
     Dosage: 1-4 PER DAY
  19. PREDNISONE [Concomitant]
     Active Substance: PREDNISONE
     Dosage: 0.5 MG/KG
  20. SULFAMETHOXAZOLE\TRIMETHOPRIM [Concomitant]
     Active Substance: SULFAMETHOXAZOLE\TRIMETHOPRIM
     Dosage: ON MONDAYS, WEDNESDAYS AND FRIDAYS.

REACTIONS (3)
  - Hepatotoxicity [Recovered/Resolved]
  - Hyperbilirubinaemia [Recovered/Resolved]
  - Coagulation factor decreased [Recovered/Resolved]

NARRATIVE: CASE EVENT DATE: 20231115
